FAERS Safety Report 5478717-X (Version None)
Quarter: 2007Q4

REPORT INFORMATION
  Report Type: 
  Country: None (occurrence: None)
  Receive Date: 20071005
  Receipt Date: 20071001
  Transmission Date: 20080405
  Serious: Yes (Other)
  Sender: FDA-Public Use
  Company Number: DE-BOEHRINGER INGELHEIM PHARMACEUTICALS, INC.-2007-DE-05840GD

PATIENT
  Age: 48 Year
  Sex: Female

DRUGS (6)
  1. CLONIDINE [Suspect]
     Indication: HYPERTENSION
  2. ACE-INHIBITOR [Suspect]
     Indication: HYPERTENSION
  3. BETA-BLOCKER [Suspect]
     Indication: HYPERTENSION
  4. CALCIUM CHANNEL BLOCKER [Suspect]
     Indication: HYPERTENSION
  5. DIURETICS [Suspect]
     Indication: HYPERTENSION
  6. VASODILATORS [Suspect]
     Indication: HYPERTENSION

REACTIONS (3)
  - DRUG INEFFECTIVE [None]
  - MENTAL DISORDER [None]
  - RENAL FAILURE ACUTE [None]
